FAERS Safety Report 7737766-9 (Version None)
Quarter: 2011Q3

REPORT INFORMATION
  Report Type: 
  Country: None (occurrence: None)
  Receive Date: 20110906
  Receipt Date: 20110825
  Transmission Date: 20111222
  Serious: Yes (Other)
  Sender: FDA-Public Use
  Company Number: UTC-009767

PATIENT
  Sex: Male

DRUGS (1)
  1. REMODULIN [Suspect]

REACTIONS (2)
  - HYPOGLYCAEMIA [None]
  - SUBARACHNOID HAEMORRHAGE [None]
